FAERS Safety Report 5121713-2 (Version None)
Quarter: 2006Q4

REPORT INFORMATION
  Report Type: 
  Country: None (occurrence: None)
  Receive Date: 20061006
  Receipt Date: 20060928
  Transmission Date: 20070319
  Serious: Yes (Hospitalization)
  Sender: FDA-Public Use
  Company Number: HK-AVENTIS-200620264GDDC

PATIENT
  Age: 63 Year
  Sex: Male

DRUGS (6)
  1. LEVOFLOXACIN [Suspect]
     Indication: PULMONARY TUBERCULOSIS
     Dates: start: 20030801
  2. ISCOTIN                            /00030201/ [Suspect]
     Indication: PULMONARY TUBERCULOSIS
     Dates: start: 20030701, end: 20030801
  3. RIFADIN [Suspect]
     Indication: PULMONARY TUBERCULOSIS
     Dates: start: 20030701, end: 20030801
  4. ETHAMBUTOL HYDROCHLORIDE [Concomitant]
     Dates: start: 20030701, end: 20030801
  5. ETHAMBUTOL HYDROCHLORIDE [Concomitant]
     Dosage: DOSE: UNK
     Dates: start: 20030801
  6. ETHAMBUTOL HYDROCHLORIDE [Concomitant]

REACTIONS (3)
  - BLOOD CREATININE INCREASED [None]
  - HEPATIC ENZYME INCREASED [None]
  - INTESTINAL PERFORATION [None]
